FAERS Safety Report 6015622-4 (Version None)
Quarter: 2008Q4

REPORT INFORMATION
  Report Type: 
  Country: None (occurrence: None)
  Receive Date: 20081219
  Receipt Date: 20081219
  Transmission Date: 20090506
  Serious: Yes (Other)
  Sender: FDA-Public Use
  Company Number: None

PATIENT
  Age: 52 Year
  Sex: Male
  Weight: 92.9874 kg

DRUGS (2)
  1. LORAZEPAM [Suspect]
     Indication: ANXIETY
     Dosage: AS NEEDED PO
     Route: 048
  2. LORAZEPAM [Suspect]
     Indication: BIPOLAR DISORDER
     Dosage: PM PO
     Route: 048
     Dates: start: 20081211, end: 20081217

REACTIONS (3)
  - HYPOAESTHESIA [None]
  - LETHARGY [None]
  - PARAESTHESIA [None]
